FAERS Safety Report 8506389-6 (Version None)
Quarter: 2012Q3

REPORT INFORMATION
  Report Type: 
  Country: None (occurrence: None)
  Receive Date: 20120706
  Receipt Date: 20120706
  Transmission Date: 20120928
  Serious: No
  Sender: FDA-Public Use
  Company Number: None

PATIENT
  Sex: Female
  Weight: 99.3377 kg

DRUGS (1)
  1. ZOLOFT [Suspect]
     Dosage: ZOLOFT 100 ONE BID #60

REACTIONS (2)
  - DRUG INEFFECTIVE [None]
  - DIARRHOEA [None]
